FAERS Safety Report 8242816-X (Version None)
Quarter: 2012Q1

REPORT INFORMATION
  Report Type: 
  Country: None (occurrence: None)
  Receive Date: 20120329
  Receipt Date: 20120321
  Transmission Date: 20120608
  Serious: Yes (Hospitalization, Other)
  Sender: FDA-Public Use
  Company Number: PHHY2012GB024733

PATIENT
  Age: 70 Year
  Sex: Female

DRUGS (5)
  1. HUMAN INSULATARD [Concomitant]
  2. METFORMIN HCL [Suspect]
     Dosage: 1 G, BID
     Route: 048
     Dates: end: 20120310
  3. ASPIRIN [Concomitant]
  4. SIMVASTATIN [Concomitant]
  5. METFORMIN HCL [Suspect]
     Dosage: 500 MG, QD
     Route: 048
     Dates: start: 20110801

REACTIONS (8)
  - METABOLIC ACIDOSIS [None]
  - VOMITING [None]
  - CARDIOVASCULAR DISORDER [None]
  - LACTIC ACIDOSIS [None]
  - RENAL IMPAIRMENT [None]
  - HYPOGLYCAEMIA [None]
  - MALAISE [None]
  - NAUSEA [None]
